FAERS Safety Report 19188549 (Version 2)
Quarter: 2021Q3

REPORT INFORMATION
  Report Type: Spontaneous
  Country: JP (occurrence: JP)
  Receive Date: 20210428
  Receipt Date: 20210712
  Transmission Date: 20211014
  Serious: Yes (Hospitalization, Other)
  Sender: FDA-Public Use
  Company Number: JP-TAKEDA-2021TJP020247

PATIENT
  Age: 4 Year
  Sex: Male
  Weight: 14 kg

DRUGS (6)
  1. BUCCOLAM OROMUCOSAL SOLUTION 5MG [Suspect]
     Active Substance: MIDAZOLAM HYDROCHLORIDE
     Indication: STATUS EPILEPTICUS
     Dosage: 5 MILLIGRAM, SINGLE
     Route: 050
     Dates: start: 20210108, end: 20210108
  2. TOPINA [Concomitant]
     Active Substance: TOPIRAMATE
     Indication: EPILEPSY
     Dosage: 25 MILLIGRAM, BID
     Route: 048
     Dates: start: 20170718
  3. ZINC. [Concomitant]
     Active Substance: ZINC
     Indication: ZINC DEFICIENCY
     Dosage: 12.5 MILLIGRAM, QD
     Route: 048
     Dates: start: 20200929
  4. SELENICA?R [Concomitant]
     Active Substance: VALPROATE SODIUM
     Indication: EPILEPSY
     Dosage: 160 MILLIGRAM, BID
     Route: 048
     Dates: start: 20170118
  5. RISPERDAL [Concomitant]
     Active Substance: RISPERIDONE
     Indication: SLEEP DISORDER
     Dosage: 0.25 MILLIGRAM, QD
     Route: 048
     Dates: start: 20190725
  6. MYSTAN [Concomitant]
     Active Substance: CLOBAZAM
     Indication: EPILEPSY
     Dosage: 2 MILLIGRAM, BID
     Route: 048
     Dates: start: 20170606

REACTIONS (1)
  - Respiratory arrest [Recovered/Resolved]

NARRATIVE: CASE EVENT DATE: 20210108
